FAERS Safety Report 20392152 (Version 2)
Quarter: 2022Q1

REPORT INFORMATION
  Report Type: Spontaneous
  Country: MA (occurrence: MA)
  Receive Date: 20220128
  Receipt Date: 20220317
  Transmission Date: 20220423
  Serious: No
  Sender: FDA-Public Use
  Company Number: MA-PFIZER INC-202200013287

PATIENT
  Age: 7 Year
  Sex: Male

DRUGS (1)
  1. GENOTROPIN [Suspect]
     Active Substance: SOMATROPIN
     Dosage: 0.6 MG, DAILY
     Route: 058
     Dates: end: 20211231

REACTIONS (2)
  - Wrong technique in device usage process [Unknown]
  - Device malfunction [Unknown]
